FAERS Safety Report 8855668 (Version 1)
Quarter: 2012Q4

REPORT INFORMATION
  Report Type: 
  Country: US (occurrence: US)
  Receive Date: 20121023
  Receipt Date: 20121023
  Transmission Date: 20130627
  Serious: No
  Sender: FDA-Public Use
  Company Number: US-AMGEN-USASP2012060016

PATIENT
  Age: 62 Year
  Sex: Female
  Weight: 56.69 kg

DRUGS (15)
  1. ENBREL [Suspect]
     Indication: PRODUCT USED FOR UNKNOWN INDICATION
     Dosage: 50 mg, qwk
     Route: 058
  2. METHOTREXATE [Concomitant]
     Dosage: 2.5 mg, UNK
  3. LIDODERM [Concomitant]
     Dosage: UNK 5%
  4. TRAMADOL [Concomitant]
     Dosage: 50 mg, UNK
  5. PREDNISONE                         /00044702/ [Concomitant]
     Dosage: 1 mg, UNK
  6. DAYPRO [Concomitant]
     Dosage: 600 mg, UNK
  7. FLEXERIL                           /00428402/ [Concomitant]
     Dosage: 5 mg, UNK
  8. HYDROCHLOROTHIAZIDE W/TRIAMTERENE [Concomitant]
     Dosage: 25-37.5
  9. ZANTAC [Concomitant]
     Dosage: 75 UNK, UNK
  10. PROZAC [Concomitant]
     Dosage: 10 mg, UNK
  11. MULTIVITAMINS, PLAIN [Concomitant]
     Dosage: UNK
  12. VITAMIN D /00107901/ [Concomitant]
     Dosage: 1000 unit, UNK
  13. ALBUTEROL                          /00139501/ [Concomitant]
     Dosage: 90 mug, UNK
  14. POTASSIUM [Concomitant]
     Dosage: 75 mg, UNK
  15. MTX                                /00113801/ [Concomitant]
     Dosage: UNK

REACTIONS (1)
  - Musculoskeletal stiffness [Unknown]
